FAERS Safety Report 9654021 (Version 2)
Quarter: 2013Q4

REPORT INFORMATION
  Report Type: Spontaneous
  Country: US (occurrence: US)
  Receive Date: 20131029
  Receipt Date: 20131126
  Transmission Date: 20140711
  Serious: No
  Sender: FDA-Public Use
  Company Number: US-BIOGENIDEC-2013BI082700

PATIENT
  Sex: Female

DRUGS (1)
  1. TECFIDERA [Suspect]
     Indication: MULTIPLE SCLEROSIS
     Route: 048

REACTIONS (8)
  - Pyrexia [Recovered/Resolved]
  - Faeces discoloured [Recovered/Resolved]
  - Chills [Recovered/Resolved]
  - Viral infection [Unknown]
  - Vomiting [Recovered/Resolved]
  - Gastrointestinal pain [Recovered/Resolved]
  - Nausea [Unknown]
  - Diarrhoea [Unknown]
